FAERS Safety Report 8486188-4 (Version None)
Quarter: 2012Q3

REPORT INFORMATION
  Report Type: 
  Country: None (occurrence: None)
  Receive Date: 20120703
  Receipt Date: 20120628
  Transmission Date: 20120928
  Serious: Yes (Death, Hospitalization)
  Sender: FDA-Public Use
  Company Number: SE-TEVA-327925USA

PATIENT
  Sex: Male
  Weight: 81.2 kg

DRUGS (12)
  1. TREANDA [Suspect]
     Route: 042
     Dates: start: 20110909
  2. RITUXIMAB [Suspect]
     Dosage: EVERY 4 WEEKS
     Route: 042
     Dates: start: 20110909
  3. ZOPICLONE [Concomitant]
     Dates: start: 20110101
  4. FUROSEMIDE [Concomitant]
     Dates: start: 20000831
  5. WARFARIN SODIUM [Concomitant]
     Dates: start: 20000626
  6. FESOTERODINE [Concomitant]
     Dates: start: 20091104
  7. FOLSYRA [Concomitant]
     Dates: start: 20120221
  8. CANDESARTAN [Concomitant]
     Dates: start: 20000831
  9. CITALOPRAM HYDROBROMIDE [Concomitant]
     Dates: start: 20041228
  10. FINASTERIDE [Concomitant]
     Dates: start: 20040101
  11. CIPROFLOXACIN HYDROCHLORIDE [Concomitant]
     Dates: start: 20120220, end: 20120229
  12. BISOPROLOL FUMARATE [Concomitant]
     Dates: start: 20000831

REACTIONS (3)
  - POLYNEUROPATHY [None]
  - NEUROLOGICAL SYMPTOM [None]
  - CORONARY ARTERY DISEASE [None]
